FAERS Safety Report 9378995 (Version 2)
Quarter: 2013Q3

REPORT INFORMATION
  Report Type: Spontaneous
  Country: US (occurrence: US)
  Receive Date: 20130702
  Receipt Date: 20130726
  Transmission Date: 20140515
  Serious: No
  Sender: FDA-Public Use
  Company Number: US-009507513-1307USA000067

PATIENT
  Age: 66 Year
  Sex: Male

DRUGS (1)
  1. TICE BCG LIVE [Suspect]
     Indication: BLADDER CANCER
     Dosage: UNK (STRENGTH: 50 MG)
     Dates: start: 20020917

REACTIONS (1)
  - Tuberculin test positive [Not Recovered/Not Resolved]
